FAERS Safety Report 5923602-X (Version None)
Quarter: 2008Q4

REPORT INFORMATION
  Report Type: 
  Country: None (occurrence: None)
  Receive Date: 20081015
  Receipt Date: 20080929
  Transmission Date: 20090506
  Serious: Yes (Other)
  Sender: FDA-Public Use
  Company Number: US-GDP-08404710

PATIENT
  Age: 69 Year
  Sex: Male

DRUGS (3)
  1. METROGEL [Suspect]
     Indication: ROSACEA
     Dosage: ( 1 DF QD TOPICAL)
     Route: 061
     Dates: start: 20060101
  2. CARDIZEM [Suspect]
     Indication: HYPERTENSION
     Dosage: (120 MG BID ORAL)
     Route: 048
     Dates: start: 20070101
  3. NEXIUM [Suspect]
     Indication: GASTROOESOPHAGEAL REFLUX DISEASE
     Dosage: (20 MG QD ORAL)
     Route: 048
     Dates: start: 20070101

REACTIONS (4)
  - ANAEMIA [None]
  - CONDITION AGGRAVATED [None]
  - ROSACEA [None]
  - THROMBOCYTOPENIA [None]
